FAERS Safety Report 10151671 (Version 1)
Quarter: 2014Q2

REPORT INFORMATION
  Report Type: Report from Study
  Country: US (occurrence: US)
  Receive Date: 20140505
  Receipt Date: 20140505
  Transmission Date: 20141212
  Serious: Yes (Other)
  Sender: FDA-Public Use
  Company Number: US-ROCHE-1351357

PATIENT
  Sex: Female

DRUGS (4)
  1. LUCENTIS [Suspect]
     Indication: DIABETIC EYE DISEASE
     Route: 050
  2. AVASTIN [Suspect]
     Indication: DIABETIC RETINAL OEDEMA
     Route: 065
  3. MYDRIACYL [Concomitant]
     Route: 065
  4. NEO-SYNEPHRINE [Concomitant]
     Route: 065

REACTIONS (3)
  - Eye irritation [Unknown]
  - Off label use [Unknown]
  - Cataract nuclear [Unknown]
